FAERS Safety Report 14361972 (Version 1)
Quarter: 2018Q1

REPORT INFORMATION
  Report Type: Spontaneous
  Country: US (occurrence: US)
  Receive Date: 20180108
  Receipt Date: 20180108
  Transmission Date: 20180509
  Serious: No
  Sender: FDA-Public Use
  Company Number: US-AUROBINDO-AUR-APU-2017-39824

PATIENT
  Age: 28 Year
  Sex: Male
  Weight: 58.96 kg

DRUGS (2)
  1. OXYCODONE HYDROCHLORIDE TABLETS USP 15 MG [Suspect]
     Active Substance: OXYCODONE HYDROCHLORIDE
     Indication: NEOPLASM MALIGNANT
     Dosage: UNK UNK, FOUR TIMES/DAY
     Route: 048
  2. OXYCODONE HYDROCHLORIDE TABLETS USP 15 MG [Suspect]
     Active Substance: OXYCODONE HYDROCHLORIDE
     Indication: KNEE OPERATION

REACTIONS (4)
  - Erythema [Not Recovered/Not Resolved]
  - Hyperhidrosis [Not Recovered/Not Resolved]
  - Pruritus [Not Recovered/Not Resolved]
  - Influenza [Not Recovered/Not Resolved]

NARRATIVE: CASE EVENT DATE: 20170821
